FAERS Safety Report 8472359-X (Version None)
Quarter: 2012Q2

REPORT INFORMATION
  Report Type: 
  Country: None (occurrence: None)
  Receive Date: 20120627
  Receipt Date: 20110607
  Transmission Date: 20120825
  Serious: No
  Sender: FDA-Public Use
  Company Number: US-AMGEN-USASP2011029736

PATIENT
  Age: 83 Year
  Sex: Female
  Weight: 86.168 kg

DRUGS (2)
  1. PROCRIT [Suspect]
     Indication: ANAEMIA
     Dosage: UNK UNK, QWK
     Route: 058
     Dates: start: 20110518
  2. ALPRAZOLAM [Concomitant]

REACTIONS (1)
  - BLOOD COUNT ABNORMAL [None]
